FAERS Safety Report 15788465 (Version 2)
Quarter: 2019Q2

REPORT INFORMATION
  Report Type: Spontaneous
  Country: CN (occurrence: CN)
  Receive Date: 20190104
  Receipt Date: 20190627
  Transmission Date: 20190711
  Serious: Yes (Other)
  Sender: FDA-Public Use
  Company Number: CN-ROCHE-2237861

PATIENT
  Age: 39 Year
  Sex: Female

DRUGS (29)
  1. BEVACIZUMAB. [Suspect]
     Active Substance: BEVACIZUMAB
     Route: 041
     Dates: start: 20150409
  2. CALCIUM FOLINATE [Concomitant]
     Active Substance: LEUCOVORIN CALCIUM
     Route: 065
     Dates: start: 20150131
  3. FLUOROURACIL. [Concomitant]
     Active Substance: FLUOROURACIL
     Indication: RECTAL CANCER METASTATIC
     Route: 041
     Dates: start: 20141120, end: 20150108
  4. FLUOROURACIL. [Concomitant]
     Active Substance: FLUOROURACIL
     Route: 065
     Dates: start: 20170622
  5. LEUCOVORIN [FOLINIC ACID] [Concomitant]
     Active Substance: LEUCOVORIN
     Route: 065
     Dates: start: 20150131
  6. BEVACIZUMAB. [Suspect]
     Active Substance: BEVACIZUMAB
     Indication: RECTAL CANCER METASTATIC
     Route: 041
     Dates: start: 20141120, end: 20150108
  7. BEVACIZUMAB. [Suspect]
     Active Substance: BEVACIZUMAB
     Route: 041
     Dates: start: 20150302
  8. CALCIUM FOLINATE [Concomitant]
     Active Substance: LEUCOVORIN CALCIUM
     Indication: RECTAL CANCER METASTATIC
     Route: 041
     Dates: start: 20141120, end: 20150108
  9. FLUOROURACIL. [Concomitant]
     Active Substance: FLUOROURACIL
     Route: 041
     Dates: start: 20150427
  10. LEUCOVORIN [FOLINIC ACID] [Concomitant]
     Active Substance: LEUCOVORIN
     Route: 041
     Dates: start: 20150427
  11. LEUCOVORIN [FOLINIC ACID] [Concomitant]
     Active Substance: LEUCOVORIN
     Route: 041
     Dates: start: 20170820
  12. IRINOTECAN [Concomitant]
     Active Substance: IRINOTECAN
     Route: 065
     Dates: start: 20170622
  13. BEVACIZUMAB. [Suspect]
     Active Substance: BEVACIZUMAB
     Route: 041
     Dates: start: 201507
  14. OXALIPLATIN. [Concomitant]
     Active Substance: OXALIPLATIN
     Indication: RECTAL CANCER METASTATIC
     Route: 041
     Dates: start: 20141120, end: 20150108
  15. FLUOROURACIL. [Concomitant]
     Active Substance: FLUOROURACIL
     Route: 065
     Dates: start: 20170622
  16. FLUOROURACIL. [Concomitant]
     Active Substance: FLUOROURACIL
     Route: 065
     Dates: start: 20170820
  17. LEUCOVORIN [FOLINIC ACID] [Concomitant]
     Active Substance: LEUCOVORIN
     Indication: RECTAL CANCER METASTATIC
     Route: 041
     Dates: start: 20141120, end: 20150108
  18. IRINOTECAN [Concomitant]
     Active Substance: IRINOTECAN
     Route: 065
     Dates: start: 20170820
  19. BEVACIZUMAB. [Suspect]
     Active Substance: BEVACIZUMAB
     Route: 041
     Dates: start: 20170622
  20. BEVACIZUMAB. [Suspect]
     Active Substance: BEVACIZUMAB
     Route: 041
     Dates: start: 20150131
  21. BEVACIZUMAB. [Suspect]
     Active Substance: BEVACIZUMAB
     Route: 041
     Dates: start: 201707
  22. BEVACIZUMAB. [Suspect]
     Active Substance: BEVACIZUMAB
     Route: 041
     Dates: start: 20170820
  23. OXALIPLATIN. [Concomitant]
     Active Substance: OXALIPLATIN
     Route: 065
     Dates: start: 20150131
  24. OXALIPLATIN. [Concomitant]
     Active Substance: OXALIPLATIN
     Route: 041
     Dates: start: 20150427
  25. FLUOROURACIL. [Concomitant]
     Active Substance: FLUOROURACIL
     Route: 065
     Dates: start: 20150131
  26. IRINOTECAN [Concomitant]
     Active Substance: IRINOTECAN
     Route: 065
     Dates: start: 20170725
  27. BEVACIZUMAB. [Suspect]
     Active Substance: BEVACIZUMAB
     Route: 041
     Dates: start: 20150427
  28. BEVACIZUMAB. [Suspect]
     Active Substance: BEVACIZUMAB
     Route: 041
     Dates: start: 20170725
  29. FLUOROURACIL. [Concomitant]
     Active Substance: FLUOROURACIL
     Route: 065
     Dates: start: 20170725

REACTIONS (5)
  - Nausea [Unknown]
  - Bone marrow failure [Unknown]
  - Urine analysis abnormal [Unknown]
  - Vomiting [Unknown]
  - Gastrointestinal disorder [Unknown]
